FAERS Safety Report 18071416 (Version 1)
Quarter: 2020Q3

REPORT INFORMATION
  Report Type: Spontaneous
  Country: US (occurrence: US)
  Receive Date: 20200724
  Receipt Date: 20200724
  Transmission Date: 20201103
  Serious: No
  Sender: FDA-Public Use
  Company Number: None

PATIENT
  Age: 35 Year
  Sex: Female

DRUGS (1)
  1. DEFERASIROX. [Suspect]
     Active Substance: DEFERASIROX
     Route: 048
     Dates: start: 201908

REACTIONS (5)
  - Reaction to excipient [None]
  - Fatigue [None]
  - Pyrexia [None]
  - Chills [None]
  - Decreased appetite [None]

NARRATIVE: CASE EVENT DATE: 20200724
